FAERS Safety Report 5692211-2 (Version None)
Quarter: 2008Q2

REPORT INFORMATION
  Report Type: 
  Country: None (occurrence: None)
  Receive Date: 20080402
  Receipt Date: 20080321
  Transmission Date: 20081010
  Serious: Yes (Death, Hospitalization)
  Sender: FDA-Public Use
  Company Number: JP-PFIZER INC-2008024891

PATIENT
  Age: 70 Year
  Sex: Male

DRUGS (7)
  1. ZYVOX [Suspect]
     Indication: PNEUMONIA
     Dosage: DAILY DOSE:1200MG
     Route: 042
     Dates: start: 20080301, end: 20080312
  2. FLUMARIN [Concomitant]
  3. VANCOMYCIN HYDROCHLORIDE [Concomitant]
  4. MEROPEN [Concomitant]
  5. PASIL [Concomitant]
  6. MICAFUNGIN [Concomitant]
  7. PRODIF [Concomitant]

REACTIONS (3)
  - HYPOPNOEA [None]
  - PLATELET COUNT DECREASED [None]
  - WHITE BLOOD CELL COUNT DECREASED [None]
